FAERS Safety Report 16229240 (Version 1)
Quarter: 2019Q2

REPORT INFORMATION
  Report Type: Spontaneous
  Country: US (occurrence: US)
  Receive Date: 20190423
  Receipt Date: 20190423
  Transmission Date: 20190711
  Serious: No
  Sender: FDA-Public Use
  Company Number: US-ARBOR PHARMACEUTICALS, LLC-US-2018ARB000383

PATIENT

DRUGS (3)
  1. EDARBI [Suspect]
     Active Substance: AZILSARTAN KAMEDOXOMIL
     Dosage: 40 MG, BID
     Route: 048
     Dates: start: 2018
  2. EDARBI [Suspect]
     Active Substance: AZILSARTAN KAMEDOXOMIL
     Dosage: 80 MG, QD IN MORNING
     Route: 048
     Dates: start: 2018, end: 2018
  3. EDARBI [Suspect]
     Active Substance: AZILSARTAN KAMEDOXOMIL
     Indication: HYPERTENSION
     Dosage: 40 MG, UNK
     Route: 048
     Dates: start: 201705, end: 2018

REACTIONS (4)
  - Lethargy [Recovered/Resolved]
  - Hypotension [Recovered/Resolved]
  - Asthenia [Recovered/Resolved]
  - Arteriosclerosis [Not Recovered/Not Resolved]

NARRATIVE: CASE EVENT DATE: 2018
